APPROVED DRUG PRODUCT: KETOROLAC TROMETHAMINE
Active Ingredient: KETOROLAC TROMETHAMINE
Strength: 30MG/ML
Dosage Form/Route: INJECTABLE;INJECTION
Application: A201155 | Product #002
Applicant: ONESOURCE SPECIALTY PTE LTD
Approved: Aug 4, 2014 | RLD: No | RS: No | Type: DISCN